FAERS Safety Report 10501002 (Version 1)
Quarter: 2014Q4

REPORT INFORMATION
  Report Type: Spontaneous
  Country: US (occurrence: None)
  Receive Date: 20141003
  Receipt Date: 20141003
  Transmission Date: 20150528
  Serious: Yes (Other)
  Sender: FDA-Public Use
  Company Number: None

PATIENT
  Age: 49 Year
  Sex: Female
  Weight: 65.77 kg

DRUGS (1)
  1. SINGULAIR [Suspect]
     Active Substance: MONTELUKAST SODIUM
     Indication: ILL-DEFINED DISORDER
     Dosage: 1 PILL, TAKEN BY MOUTH
     Route: 048

REACTIONS (3)
  - Reaction to drug excipients [None]
  - Asthma [None]
  - Impaired work ability [None]

NARRATIVE: CASE EVENT DATE: 20141002
